FAERS Safety Report 7983782-1 (Version None)
Quarter: 2011Q4

REPORT INFORMATION
  Report Type: 
  Country: None (occurrence: None)
  Receive Date: 20111215
  Receipt Date: 20111005
  Transmission Date: 20120403
  Serious: Yes (Other)
  Sender: FDA-Public Use
  Company Number: PHHY2011JP92012

PATIENT
  Age: 27 Year
  Sex: Male

DRUGS (6)
  1. CYTARABINE [Concomitant]
     Dosage: 8 G/M2
  2. CYCLOPHOSPHAMIDE [Concomitant]
     Dosage: 120 MG/KG
  3. CYCLOSPORINE [Concomitant]
     Indication: GRAFT VERSUS HOST DISEASE
     Dosage: UNK UKN, UNK
  4. NILOTINIB [Suspect]
     Indication: CHRONIC MYELOID LEUKAEMIA
     Dosage: 800 MG/DAY
     Route: 048
  5. DASATINIB [Concomitant]
     Dosage: 100 MG/DAY
  6. METHOTREXATE [Concomitant]
     Indication: GRAFT VERSUS HOST DISEASE
     Dosage: UNK UKN, UNK

REACTIONS (2)
  - DRUG INTOLERANCE [None]
  - ENGRAFTMENT SYNDROME [None]
